FAERS Safety Report 11726946 (Version 2)
Quarter: 2016Q1

REPORT INFORMATION
  Report Type: Spontaneous
  Country: JP (occurrence: JP)
  Receive Date: 20151112
  Receipt Date: 20160120
  Transmission Date: 20160525
  Serious: Yes (Life-Threatening)
  Sender: FDA-Public Use
  Company Number: JP-ROCHE-1659761

PATIENT
  Age: 70 Year
  Sex: Female
  Weight: 31 kg

DRUGS (2)
  1. AVASTIN [Suspect]
     Active Substance: BEVACIZUMAB
     Indication: BREAST CANCER
     Dosage: COMPLETED TREATMENT CYCLE NO. : EIGHT TIME ADMINISTERING
     Route: 041
     Dates: start: 20150731, end: 20151113
  2. PACLITAXEL. [Suspect]
     Active Substance: PACLITAXEL
     Indication: BREAST CANCER
     Dosage: COMPLETED TREATMENT CYCLE NUMBER: 12 TIME ADMINISTERING
     Route: 041
     Dates: start: 20150731, end: 20151106

REACTIONS (1)
  - Interstitial lung disease [Recovered/Resolved]

NARRATIVE: CASE EVENT DATE: 20151018
